FAERS Safety Report 4603683-6 (Version None)
Quarter: 2005Q1

REPORT INFORMATION
  Report Type: 
  Country: None (occurrence: None)
  Receive Date: 20050310
  Receipt Date: 20050224
  Transmission Date: 20050727
  Serious: Yes (Other)
  Sender: FDA-Public Use
  Company Number: CH-JNJFOC-20050107274

PATIENT
  Age: 27 Year
  Sex: Female

DRUGS (2)
  1. CAELYX [Suspect]
     Dosage: 20 MG/M^2 (17TH CYCLE)
     Route: 042
  2. CAELYX [Suspect]
     Indication: KAPOSI'S SARCOMA
     Dosage: UNKNOWN DOSE X 16 CYCLES
     Route: 042

REACTIONS (1)
  - PROTEINURIA [None]
